FAERS Safety Report 4518431-8 (Version None)
Quarter: 2004Q4

REPORT INFORMATION
  Report Type: 
  Country: None (occurrence: None)
  Receive Date: 20041202
  Receipt Date: 20041129
  Transmission Date: 20050328
  Serious: Yes (Other)
  Sender: FDA-Public Use
  Company Number: THQ2004A00969

PATIENT
  Age: 41 Year
  Sex: Female

DRUGS (4)
  1. PROSTAP (LEUPROLIDE ACETATE) [Suspect]
     Indication: ENDOMETRIOSIS
     Dosage: 11.25 MG (11.25 MG, 1 IN 1 M)
     Dates: start: 20040309, end: 20040429
  2. PROSTAP SR (LEUPROLIDE ACETATE) (UNKNOWN) [Suspect]
     Indication: ENDOMETRIOSIS
     Dosage: 3.75 MG (3.75 MG, 1 IN 1 M)
     Dates: start: 20040206, end: 20040206
  3. DOXYCYCLINE [Concomitant]
  4. THYROXINE (LEVOTHYROXINE SODIUM) [Concomitant]

REACTIONS (6)
  - ARTHRALGIA [None]
  - MEDICATION ERROR [None]
  - MUSCULOSKELETAL DISCOMFORT [None]
  - MYALGIA [None]
  - OVERDOSE [None]
  - PERIARTHRITIS [None]
